FAERS Safety Report 16380637 (Version 1)
Quarter: 2019Q2

REPORT INFORMATION
  Report Type: Spontaneous
  Country: FR (occurrence: FR)
  Receive Date: 20190601
  Receipt Date: 20190601
  Transmission Date: 20190711
  Serious: Yes (Death)
  Sender: FDA-Public Use
  Company Number: FR-ACCORD-130129

PATIENT
  Age: 39 Year
  Sex: Female
  Weight: 38 kg

DRUGS (6)
  1. SCOPOLAMINE RENAUDIN [Suspect]
     Active Substance: SCOPOLAMINE
     Indication: INCREASED BRONCHIAL SECRETION
     Route: 041
     Dates: start: 20190118, end: 20190118
  2. PRIMPERAN [Suspect]
     Active Substance: METOCLOPRAMIDE HYDROCHLORIDE
     Indication: PROPHYLAXIS OF NAUSEA AND VOMITING
     Route: 041
     Dates: start: 20190117, end: 20190117
  3. HYDROXYZINE RENAUDIN [Suspect]
     Active Substance: HYDROXYZINE HYDROCHLORIDE
     Indication: ANXIETY
     Route: 041
     Dates: start: 20190117, end: 20190117
  4. CALCIPARINE [Suspect]
     Active Substance: HEPARIN CALCIUM
     Indication: THROMBOSIS PROPHYLAXIS
     Route: 058
     Dates: start: 20181224, end: 20190109
  5. ONDANSETRON ACCORD [Suspect]
     Active Substance: ONDANSETRON
     Indication: PROPHYLAXIS OF NAUSEA AND VOMITING
     Route: 041
     Dates: start: 20190117, end: 20190117
  6. FLUOROURACIL  ACCORD [Suspect]
     Active Substance: FLUOROURACIL
     Indication: SQUAMOUS CELL CARCINOMA
     Route: 041
     Dates: start: 20190115

REACTIONS (2)
  - Death [Fatal]
  - Product prescribing error [Fatal]

NARRATIVE: CASE EVENT DATE: 201901
